FAERS Safety Report 9244951 (Version 1)
Quarter: 2013Q2

REPORT INFORMATION
  Report Type: Spontaneous
  Country: IL (occurrence: IL)
  Receive Date: 20130422
  Receipt Date: 20130422
  Transmission Date: 20140414
  Serious: Yes (Other)
  Sender: FDA-Public Use
  Company Number: PHHY2013IL038006

PATIENT
  Sex: Female

DRUGS (3)
  1. CERTICAN [Suspect]
     Indication: RENAL TRANSPLANT
     Dosage: 1.25 MG, BID
     Route: 048
  2. PREDNISONE [Concomitant]
     Dosage: 5 MG,DAILY
  3. MYFORTIC [Concomitant]
     Dosage: 180 MG, BID

REACTIONS (1)
  - Urinary incontinence [Unknown]
